FAERS Safety Report 9344085 (Version 1)
Quarter: 2013Q2

REPORT INFORMATION
  Report Type: Spontaneous
  Country: FR (occurrence: FR)
  Receive Date: 20130612
  Receipt Date: 20130612
  Transmission Date: 20140414
  Serious: Yes (Hospitalization)
  Sender: FDA-Public Use
  Company Number: FR-PFIZER INC-2013172380

PATIENT
  Age: 64 Year
  Sex: Female

DRUGS (21)
  1. VFEND [Suspect]
     Dosage: 250 MG, DAILY
     Route: 042
     Dates: start: 20130317, end: 20130329
  2. ZYVOXID [Suspect]
     Dosage: 1.2 G, 1X/DAY
     Route: 042
     Dates: start: 20130317, end: 20130328
  3. SOLUDACTONE [Suspect]
     Dosage: UNK
     Route: 042
     Dates: start: 20130321, end: 20130330
  4. TIENAM [Suspect]
     Dosage: 2 G, 1X/DAY
     Route: 042
     Dates: start: 20130314, end: 20130331
  5. HYPNOVEL [Suspect]
     Dosage: UNK
     Route: 042
     Dates: start: 20130316, end: 20130328
  6. INEXIUM [Suspect]
     Dosage: 20 MG, DAILY
     Route: 048
     Dates: start: 20130317, end: 20130401
  7. FENTANYL [Concomitant]
     Dosage: UNK
     Route: 042
     Dates: start: 20130316
  8. AMBISOME [Concomitant]
     Dosage: UNK
     Dates: start: 20130311, end: 20130316
  9. AMIKLIN [Concomitant]
     Dosage: UNK
     Dates: start: 20130316, end: 20130317
  10. RIFADINE [Concomitant]
     Dosage: UNK
     Dates: start: 20130318, end: 20130320
  11. VANCOMYCIN [Concomitant]
     Dosage: UNK
     Dates: start: 20130311, end: 20130317
  12. FORTUM [Concomitant]
     Dosage: UNK
     Dates: start: 20130309, end: 20130316
  13. CIFLOX [Concomitant]
     Dosage: UNK
     Dates: start: 20130309, end: 20130316
  14. LASILIX [Concomitant]
     Dosage: UNK
     Dates: start: 20130320, end: 20130323
  15. LASILIX [Concomitant]
     Dosage: UNK
     Dates: start: 20130326, end: 20130330
  16. ACTRAPID [Concomitant]
     Dosage: UNK
  17. LOVENOX [Concomitant]
     Dosage: UNK
  18. NOXAFIL [Concomitant]
     Dosage: UNK
     Dates: start: 201208
  19. ZELITREX [Concomitant]
     Dosage: UNK
     Dates: start: 20121106
  20. EXJADE [Concomitant]
     Dosage: UNK
     Dates: start: 20130214
  21. DELURSAN [Concomitant]
     Dosage: UNK
     Dates: start: 20130214

REACTIONS (3)
  - Rash maculo-papular [Recovered/Resolved]
  - Eosinophilia [Recovered/Resolved]
  - Cholestasis [Not Recovered/Not Resolved]
